FAERS Safety Report 5234353-1 (Version None)
Quarter: 2007Q1

REPORT INFORMATION
  Report Type: 
  Country: None (occurrence: None)
  Receive Date: 20070207
  Receipt Date: 20070125
  Transmission Date: 20070707
  Serious: Yes (Hospitalization)
  Sender: FDA-Public Use
  Company Number: SU-2007-005845

PATIENT
  Age: 76 Year
  Sex: Female

DRUGS (1)
  1. BENICAR HCT [Suspect]
     Indication: HYPERTENSION
     Dosage: 40.125 MG QD PO
     Route: 048
     Dates: start: 20070102, end: 20070115

REACTIONS (2)
  - BLOOD SODIUM DECREASED [None]
  - CONFUSIONAL STATE [None]
